FAERS Safety Report 9675335 (Version 1)
Quarter: 2013Q4

REPORT INFORMATION
  Report Type: Spontaneous
  Country: US (occurrence: None)
  Receive Date: 20131105
  Receipt Date: 20131105
  Transmission Date: 20140711
  Serious: Yes (Hospitalization, Disabling)
  Sender: FDA-Public Use
  Company Number: GB-MACLEODS-PHARMA-000159

PATIENT
  Sex: Male
  Weight: 72 kg

DRUGS (1)
  1. DONEPEZIL (DONEPEZIL) [Suspect]
     Indication: DEMENTIA ALZHEIMER^S TYPE
     Dosage: 5.00MG-1.00 TIMES/ORAL PER 1 DAY
     Dates: start: 20130308, end: 20130310

REACTIONS (9)
  - Atrial fibrillation [None]
  - Bradycardia [None]
  - Eye movement disorder [None]
  - Tremor [None]
  - Syncope [None]
  - Cold sweat [None]
  - Pallor [None]
  - Unresponsive to stimuli [None]
  - Vomiting [None]
